FAERS Safety Report 8420787-0 (Version None)
Quarter: 2012Q2

REPORT INFORMATION
  Report Type: 
  Country: None (occurrence: None)
  Receive Date: 20120608
  Receipt Date: 20120604
  Transmission Date: 20120825
  Serious: Yes (Other)
  Sender: FDA-Public Use
  Company Number: US-PFIZER INC-2012009375

PATIENT
  Sex: Female
  Weight: 61 kg

DRUGS (5)
  1. KEPPRA [Suspect]
     Indication: CONVULSION
     Dosage: UNK
  2. LACTIC ACID BACILLUS PROBIOTIC [Concomitant]
     Indication: PROBIOTIC THERAPY
     Dosage: 1 PILL DAILY
  3. LYRICA [Suspect]
     Indication: CONVULSION
     Dosage: 150 MG, 4X/DAY
     Route: 048
     Dates: start: 20050101
  4. PHENOBARBITAL [Suspect]
     Indication: CONVULSION
     Dosage: 260 MG DAILY
     Dates: start: 19970101
  5. IRON [Concomitant]
     Indication: BLOOD IRON DECREASED
     Dosage: UNK, DAILY

REACTIONS (2)
  - CONVULSION [None]
  - DRUG INEFFECTIVE [None]
